FAERS Safety Report 11307985 (Version 3)
Quarter: 2015Q3

REPORT INFORMATION
  Report Type: Spontaneous
  Country: FR (occurrence: FR)
  Receive Date: 20150724
  Receipt Date: 20150904
  Transmission Date: 20151125
  Serious: No
  Sender: FDA-Public Use
  Company Number: FR-ASTRAZENECA-2015SE70669

PATIENT
  Age: 74 Year
  Sex: Female
  Weight: 80 kg

DRUGS (11)
  1. LEVEMIR [Concomitant]
     Active Substance: INSULIN DETEMIR
     Dates: start: 2012
  2. FUROSEMIDE. [Concomitant]
     Active Substance: FUROSEMIDE
     Dates: start: 2012
  3. BYDUREON [Suspect]
     Active Substance: EXENATIDE
     Indication: TYPE 2 DIABETES MELLITUS
     Route: 058
     Dates: start: 20150702
  4. LERCANIDIPINE [Concomitant]
     Active Substance: LERCANIDIPINE
     Dates: start: 2012
  5. METFORMIN [Concomitant]
     Active Substance: METFORMIN HYDROCHLORIDE
     Dates: start: 2012
  6. VALSARTAN. [Concomitant]
     Active Substance: VALSARTAN
     Dates: start: 2012
  7. DIAMICRON [Concomitant]
     Active Substance: GLICLAZIDE
     Dates: start: 2012
  8. KARDEGIC [Concomitant]
     Active Substance: ASPIRIN LYSINE
     Dates: start: 2012
  9. PRAVASTATIN [Concomitant]
     Active Substance: PRAVASTATIN\PRAVASTATIN SODIUM
     Dates: start: 2012
  10. BISOPROLOL [Concomitant]
     Active Substance: BISOPROLOL
  11. PLAVIX [Concomitant]
     Active Substance: CLOPIDOGREL BISULFATE
     Dosage: PLAVIX 25 ONE PER DAY
     Dates: start: 2012

REACTIONS (5)
  - Pain in extremity [Recovered/Resolved]
  - Hyperglycaemia [Recovered/Resolved]
  - Off label use [Not Recovered/Not Resolved]
  - Mobility decreased [Recovered/Resolved]
  - Oedema peripheral [Recovered/Resolved]

NARRATIVE: CASE EVENT DATE: 201507
